FAERS Safety Report 10475836 (Version 1)
Quarter: 2014Q3

REPORT INFORMATION
  Report Type: Spontaneous
  Country: US (occurrence: None)
  Receive Date: 20140923
  Receipt Date: 20140923
  Transmission Date: 20150326
  Serious: Yes (Life-Threatening, Hospitalization, Other)
  Sender: FDA-Public Use
  Company Number: 2014PRN00024

PATIENT
  Age: 67 Year
  Sex: Male

DRUGS (1)
  1. DONEPEZIL (DONEPEZIL) [Suspect]
     Active Substance: DONEPEZIL

REACTIONS (9)
  - Suicide attempt [None]
  - Ileus [None]
  - Intentional overdose [None]
  - Blood pressure increased [None]
  - Delirium [None]
  - Vomiting [None]
  - Hyperhidrosis [None]
  - Drug level above therapeutic [None]
  - Bradycardia [None]
